FAERS Safety Report 15480516 (Version 2)
Quarter: 2018Q4

REPORT INFORMATION
  Report Type: Spontaneous
  Country: NL (occurrence: NL)
  Receive Date: 20181010
  Receipt Date: 20181023
  Transmission Date: 20190205
  Serious: Yes (Other)
  Sender: FDA-Public Use
  Company Number: NL-AUROBINDO-AUR-APL-2018-048912

PATIENT
  Sex: Male

DRUGS (4)
  1. ALFUZOSIN HCL AUROBINDO PROLONGED RELEASE TABLETS 10MG [Suspect]
     Active Substance: ALFUZOSIN HYDROCHLORIDE
     Indication: URINARY RETENTION
     Dosage: 10 MILLIGRAM, TWO TIMES A DAY
     Route: 065
     Dates: start: 20180919
  2. ROPINIROL                          /01242901/ [Concomitant]
     Indication: RESTLESS LEGS SYNDROME
     Dosage: 1/1.15MG
  3. IRBESARTAN HCT [Concomitant]
     Active Substance: HYDROCHLOROTHIAZIDE\IRBESARTAN
     Indication: PRODUCT USED FOR UNKNOWN INDICATION
     Dosage: 300 MILLIGRAM, DAILY
     Route: 065
  4. TADALAFIL. [Concomitant]
     Active Substance: TADALAFIL
     Indication: ERECTILE DYSFUNCTION
     Dosage: 1T/DOSE
     Dates: start: 20180920, end: 20180922

REACTIONS (2)
  - Hyperventilation [Recovered/Resolved]
  - Shock [Recovered/Resolved]

NARRATIVE: CASE EVENT DATE: 20180924
